FAERS Safety Report 15472024 (Version 1)
Quarter: 2018Q4

REPORT INFORMATION
  Report Type: Spontaneous
  Country: DE (occurrence: DE)
  Receive Date: 20181008
  Receipt Date: 20181008
  Transmission Date: 20190205
  Serious: No
  Sender: FDA-Public Use
  Company Number: DE-IPSEN BIOPHARMACEUTICALS, INC.-2018-14484

PATIENT
  Sex: Female

DRUGS (1)
  1. AZZALURE [Suspect]
     Active Substance: BOTULINUM TOXIN TYPE A
     Indication: SKIN COSMETIC PROCEDURE

REACTIONS (4)
  - Migraine [Unknown]
  - Eye pain [Unknown]
  - Panic attack [Unknown]
  - Malaise [Unknown]
